FAERS Safety Report 10220758 (Version 1)
Quarter: 2014Q2

REPORT INFORMATION
  Report Type: Spontaneous
  Country: US (occurrence: US)
  Receive Date: 20140606
  Receipt Date: 20140606
  Transmission Date: 20141212
  Serious: No
  Sender: FDA-Public Use
  Company Number: US-PFIZER INC-2014151917

PATIENT
  Age: 65 Year
  Sex: Female

DRUGS (4)
  1. XELJANZ [Suspect]
     Dosage: 5 MG, 1 PILL
     Route: 048
     Dates: start: 20140527
  2. XELJANZ [Suspect]
     Dosage: 5 MG, 2 PILLS
     Route: 048
     Dates: start: 20140528, end: 20140528
  3. XELJANZ [Suspect]
     Dosage: 5 MG, 1 PILL
     Route: 048
     Dates: start: 20140529
  4. METHOTREXATE [Suspect]
     Dosage: UNK

REACTIONS (1)
  - Tooth disorder [Unknown]
